FAERS Safety Report 10197848 (Version 1)
Quarter: 2014Q2

REPORT INFORMATION
  Report Type: Report from Study
  Country: MX (occurrence: MX)
  Receive Date: 20140527
  Receipt Date: 20140527
  Transmission Date: 20141212
  Serious: Yes (Other)
  Sender: FDA-Public Use
  Company Number: MX-BRISTOL-MYERS SQUIBB COMPANY-20836433

PATIENT
  Age: 56 Year
  Sex: Female

DRUGS (2)
  1. ERBITUX [Suspect]
     Indication: SQUAMOUS CELL CARCINOMA OF THE TONGUE
  2. FLUOROURACIL [Concomitant]
     Indication: SQUAMOUS CELL CARCINOMA OF THE TONGUE

REACTIONS (4)
  - Nephropathy toxic [Recovering/Resolving]
  - Mouth ulceration [Unknown]
  - Diarrhoea [Unknown]
  - Dehydration [Unknown]
